FAERS Safety Report 18843099 (Version 1)
Quarter: 2021Q1

REPORT INFORMATION
  Report Type: Spontaneous
  Country: US (occurrence: US)
  Receive Date: 20210203
  Receipt Date: 20210203
  Transmission Date: 20210419
  Serious: Yes (Other)
  Sender: FDA-Public Use
  Company Number: None

PATIENT
  Age: 32 Year
  Sex: Female
  Weight: 109.35 kg

DRUGS (1)
  1. DEPO TESTOSTERONE [Suspect]
     Active Substance: TESTOSTERONE
     Indication: GENDER DYSPHORIA
     Dosage: ?          OTHER FREQUENCY:WEEKLY;?
     Route: 030

REACTIONS (2)
  - Rash [None]
  - Product contamination physical [None]

NARRATIVE: CASE EVENT DATE: 20210203
